FAERS Safety Report 17862523 (Version 1)
Quarter: 2020Q2

REPORT INFORMATION
  Report Type: Spontaneous
  Country: US (occurrence: US)
  Receive Date: 20200605
  Receipt Date: 20200605
  Transmission Date: 20200714
  Serious: Yes (Other)
  Sender: FDA-Public Use
  Company Number: US-LEADINGPHARMA-US-2020LEALIT00085

PATIENT
  Age: 17 Month
  Sex: Male

DRUGS (6)
  1. IMIPRAMINE HCL TABLETS USP [Suspect]
     Active Substance: IMIPRAMINE HYDROCHLORIDE
     Indication: DERMATITIS DIAPER
     Route: 061
  2. KETAMINE [Suspect]
     Active Substance: KETAMINE
     Indication: DERMATITIS DIAPER
     Route: 061
  3. MEFENAMIC ACID. [Suspect]
     Active Substance: MEFENAMIC ACID
     Indication: DERMATITIS DIAPER
     Route: 061
  4. GABAPENTIN. [Suspect]
     Active Substance: GABAPENTIN
     Indication: DERMATITIS DIAPER
     Route: 061
  5. CLONIDINE. [Suspect]
     Active Substance: CLONIDINE
     Indication: DERMATITIS DIAPER
     Route: 061
  6. LIDOCAINE. [Suspect]
     Active Substance: LIDOCAINE
     Indication: DERMATITIS DIAPER
     Route: 061

REACTIONS (5)
  - Unresponsive to stimuli [Unknown]
  - Product preparation error [Unknown]
  - Product use in unapproved indication [Unknown]
  - Hyporeflexia [Unknown]
  - Miosis [Unknown]
